FAERS Safety Report 17260405 (Version 1)
Quarter: 2020Q1

REPORT INFORMATION
  Report Type: Spontaneous
  Country: DK (occurrence: DK)
  Receive Date: 20200112
  Receipt Date: 20200112
  Transmission Date: 20200409
  Serious: Yes (Death)
  Sender: FDA-Public Use
  Company Number: DK-B.I. PHARMACEUTICALS,INC./RIDGEFIELD-2020-12-001593

PATIENT
  Age: 65 Year
  Sex: Male

DRUGS (4)
  1. PRADAXA [Suspect]
     Active Substance: DABIGATRAN ETEXILATE MESYLATE
     Indication: ATRIAL FIBRILLATION
     Dosage: STYRKE: 150 MG,
     Route: 048
     Dates: start: 20190515, end: 20191002
  2. ANCOZAN COMP [Concomitant]
     Active Substance: HYDROCHLOROTHIAZIDE\LOSARTAN POTASSIUM
     Indication: HYPERTENSION
     Dosage: STYRKE: 100+12.5 MG
     Route: 048
     Dates: start: 20100121
  3. METOPROLOLSUCCINAT HEXAL [Concomitant]
     Active Substance: METOPROLOL SUCCINATE
     Indication: HYPERTENSION
     Dosage: STYRKE: 50 MG
     Route: 048
     Dates: start: 20100121
  4. AMLODIPIN ACTAVIS [AMLODIPINE MESILATE] [Concomitant]
     Indication: HYPERTENSION
     Dosage: STYRKE: 5 MG
     Route: 048
     Dates: start: 20100121

REACTIONS (2)
  - Cerebellar haemorrhage [Fatal]
  - Coagulation time abnormal [Fatal]

NARRATIVE: CASE EVENT DATE: 201910
